FAERS Safety Report 5941138-7 (Version None)
Quarter: 2008Q4

REPORT INFORMATION
  Report Type: 
  Country: None (occurrence: None)
  Receive Date: 20081104
  Receipt Date: 20081030
  Transmission Date: 20090506
  Serious: Yes (Death)
  Sender: FDA-Public Use
  Company Number: CN-ABBOTT-08P-035-0484998-00

PATIENT

DRUGS (2)
  1. ALUVIA TABLETS 200MG/50MG [Suspect]
     Indication: ACQUIRED IMMUNODEFICIENCY SYNDROME
     Dosage: 800MG DAILY/ 400MG BID
     Route: 048
     Dates: start: 20080501
  2. ALUVIA TABLETS 200MG/50MG [Suspect]
     Indication: LIVER DISORDER

REACTIONS (1)
  - LIVER DISORDER [None]
